FAERS Safety Report 8094234-5 (Version None)
Quarter: 2012Q1

REPORT INFORMATION
  Report Type: 
  Country: None (occurrence: None)
  Receive Date: 20120131
  Receipt Date: 20120124
  Transmission Date: 20120608
  Serious: Yes (Hospitalization, Other)
  Sender: FDA-Public Use
  Company Number: JP-JNJFOC-20111201118

PATIENT
  Sex: Male
  Weight: 72 kg

DRUGS (21)
  1. STELARA [Suspect]
     Route: 058
     Dates: start: 20110822, end: 20110822
  2. ISONIAZID [Suspect]
     Indication: PROPHYLAXIS
     Route: 048
     Dates: start: 20110926
  3. LIDOMEX [Concomitant]
     Indication: PSORIASIS
     Route: 061
  4. LIPITOR [Concomitant]
  5. CORTRIL [Concomitant]
     Route: 048
  6. STELARA [Suspect]
     Indication: PSORIASIS
     Route: 058
     Dates: start: 20110420, end: 20110420
  7. OLOPATADINE HCL [Concomitant]
     Indication: PSORIASIS
     Route: 048
     Dates: end: 20110821
  8. NORVASC [Concomitant]
  9. STELARA [Suspect]
     Route: 058
     Dates: start: 20111118, end: 20111118
  10. BONALFA [Concomitant]
     Indication: PSORIASIS
     Route: 061
  11. TOPSYM [Concomitant]
     Indication: PSORIASIS
     Route: 061
  12. LEVOTHYROXINE SODIUM [Concomitant]
     Route: 048
  13. OXAROL [Concomitant]
     Indication: PSORIASIS
     Route: 061
  14. AZUNOL [Concomitant]
     Indication: PSORIASIS
     Route: 061
  15. EURAX [Concomitant]
     Indication: PSORIASIS
     Route: 061
  16. SAHNE [Concomitant]
     Indication: PSORIASIS
     Route: 061
  17. OLMESARTAN MEDOXOMIL [Concomitant]
     Route: 048
  18. ISONIAZID [Suspect]
     Route: 048
     Dates: start: 20110330, end: 20110729
  19. TIGASON [Concomitant]
     Indication: PSORIASIS
     Route: 048
     Dates: end: 20110729
  20. STELARA [Suspect]
     Route: 058
     Dates: start: 20110520, end: 20110520
  21. METHADERM [Concomitant]
     Indication: PSORIASIS
     Route: 061

REACTIONS (3)
  - TENDON INJURY [None]
  - HEPATIC FUNCTION ABNORMAL [None]
  - GASTRITIS [None]
